FAERS Safety Report 6166792-9 (Version None)
Quarter: 2009Q2

REPORT INFORMATION
  Report Type: 
  Country: None (occurrence: None)
  Receive Date: 20090424
  Receipt Date: 20090416
  Transmission Date: 20091009
  Serious: Yes (Other)
  Sender: FDA-Public Use
  Company Number: US-ROCHE-596933

PATIENT
  Sex: Female

DRUGS (2)
  1. PEG-INTERFERON A-2A (RO 25-8310) [Suspect]
     Indication: HEPATITIS C
     Dosage: FORM: PREFILLED SYRINGE., IN WEEK 36.
     Route: 058
     Dates: start: 20080808
  2. RIBAVIRIN [Suspect]
     Indication: HEPATITIS C
     Dosage: MISSED SOME DOSES, IN WEEK 36.
     Route: 048
     Dates: start: 20080808

REACTIONS (12)
  - ANOREXIA [None]
  - ANXIETY [None]
  - APATHY [None]
  - BRONCHITIS CHRONIC [None]
  - DEPRESSION [None]
  - FAHR'S DISEASE [None]
  - FATIGUE [None]
  - HEADACHE [None]
  - INSOMNIA [None]
  - MEMORY IMPAIRMENT [None]
  - PHARYNGITIS STREPTOCOCCAL [None]
  - UPPER RESPIRATORY TRACT INFECTION [None]
